FAERS Safety Report 25970638 (Version 1)
Quarter: 2025Q4

REPORT INFORMATION
  Report Type: Spontaneous
  Country: US (occurrence: US)
  Receive Date: 20251028
  Receipt Date: 20251028
  Transmission Date: 20260117
  Serious: No
  Sender: GALPHARM INTERNATIONAL
  Company Number: US-PERRIGO-25US009758

PATIENT
  Age: 60 Year
  Sex: Female
  Weight: 49.887 kg

DRUGS (8)
  1. NICOTINE POLACRILEX [Suspect]
     Active Substance: NICOTINE
     Indication: Smoking cessation therapy
     Dosage: 2 MG, SINGLE
     Route: 002
     Dates: start: 20250731, end: 20250731
  2. NICOTINE POLACRILEX [Suspect]
     Active Substance: NICOTINE
     Dosage: 2 MG, SINGLE
     Route: 002
     Dates: start: 20250801, end: 20250801
  3. MINERALS\VITAMINS [Concomitant]
     Active Substance: MINERALS\VITAMINS
     Indication: Prophylaxis
     Dosage: UNKNOWN, UNKNOWN
     Route: 065
  4. VITAMIN D3 [Concomitant]
     Active Substance: CHOLECALCIFEROL
     Indication: Spinal disorder
     Dosage: 25 MCG, UNKNOWN
     Route: 065
  5. COLLAGEN [Concomitant]
     Active Substance: COLLAGEN
     Indication: Spinal disorder
     Dosage: 1000 MG, UNKNOWN
     Route: 065
  6. FISH OIL [Concomitant]
     Active Substance: FISH OIL
     Indication: Blood cholesterol increased
     Dosage: 2000 MG, UNKNOWN
     Route: 065
     Dates: start: 202503
  7. MAGNESIUM GLYCINATE [Concomitant]
     Active Substance: MAGNESIUM GLYCINATE
     Indication: Insomnia
     Dosage: UNKNOWN, QHS
     Route: 065
     Dates: start: 202503
  8. CLONAZEPAM [Concomitant]
     Active Substance: CLONAZEPAM
     Indication: Insomnia
     Dosage: 0.5 MG, QHS PRN
     Route: 065
     Dates: start: 20250731, end: 20250801

REACTIONS (7)
  - Gastrooesophageal reflux disease [Recovered/Resolved]
  - Salivary hypersecretion [Recovered/Resolved]
  - Oral mucosal blistering [Recovered/Resolved]
  - Oral pain [Recovered/Resolved]
  - Oral mucosal erythema [Recovered/Resolved]
  - Oral discomfort [Recovered/Resolved]
  - Paraesthesia mucosal [Recovered/Resolved]

NARRATIVE: CASE EVENT DATE: 20250731
